FAERS Safety Report 5449694-2 (Version None)
Quarter: 2007Q3

REPORT INFORMATION
  Report Type: 
  Country: None (occurrence: None)
  Receive Date: 20070910
  Receipt Date: 20070829
  Transmission Date: 20080115
  Serious: Yes (Hospitalization)
  Sender: FDA-Public Use
  Company Number: 2007SP017403

PATIENT
  Age: 59 Year
  Sex: Male

DRUGS (2)
  1. REBETOL [Suspect]
     Indication: HEPATITIS C
     Dosage: 800 MG;QD;PO
     Route: 048
     Dates: start: 20060601, end: 20070719
  2. ROFERON-A [Suspect]
     Indication: HEPATITIS C
     Dosage: 1.9286 KIU;TIW;SC
     Route: 058
     Dates: start: 20060601, end: 20070707

REACTIONS (15)
  - CLONUS [None]
  - CONFUSIONAL STATE [None]
  - COORDINATION ABNORMAL [None]
  - DEPRESSED LEVEL OF CONSCIOUSNESS [None]
  - ELECTROENCEPHALOGRAM ABNORMAL [None]
  - ENCEPHALITIS [None]
  - EPILEPSY [None]
  - LUMBAR PUNCTURE ABNORMAL [None]
  - MYOCLONUS [None]
  - NUCLEAR MAGNETIC RESONANCE IMAGING BRAIN ABNORMAL [None]
  - PARTIAL SEIZURES [None]
  - PSYCHOMOTOR HYPERACTIVITY [None]
  - PSYCHOMOTOR RETARDATION [None]
  - REFLEXES ABNORMAL [None]
  - SPEECH DISORDER [None]
